FAERS Safety Report 5642934-6 (Version None)
Quarter: 2008Q1

REPORT INFORMATION
  Report Type: 
  Country: None (occurrence: None)
  Receive Date: 20080227
  Receipt Date: 20080227
  Transmission Date: 20080703
  Serious: No
  Sender: FDA-Public Use
  Company Number: None

PATIENT
  Age: 86 Year
  Sex: Female
  Weight: 63.5036 kg

DRUGS (1)
  1. OCUVITE ADULT  50+    50+   BAUSCH AND LOMB [Suspect]
     Indication: MACULAR DEGENERATION
     Dosage: 1 CAPSULE DAILY PO
     Route: 048
     Dates: start: 20080201, end: 20080214

REACTIONS (4)
  - ABDOMINAL PAIN [None]
  - DIARRHOEA [None]
  - FAECES DISCOLOURED [None]
  - PHARMACEUTICAL PRODUCT COMPLAINT [None]
